FAERS Safety Report 6248585-7 (Version None)
Quarter: 2009Q2

REPORT INFORMATION
  Report Type: 
  Country: None (occurrence: None)
  Receive Date: 20090624
  Receipt Date: 20090624
  Transmission Date: 20091009
  Serious: Yes (Life-Threatening)
  Sender: FDA-Public Use
  Company Number: None

PATIENT
  Age: 68 Year
  Sex: Female

DRUGS (5)
  1. AMPICILLIN [Suspect]
     Indication: MENINGITIS
     Dosage: 2GM IV X 1
     Route: 042
     Dates: start: 20090323
  2. CEFEPIME [Concomitant]
  3. VANCOMYCIN HCL [Concomitant]
  4. INSULIN [Concomitant]
  5. RANITIDINE [Concomitant]

REACTIONS (2)
  - ANAPHYLACTIC SHOCK [None]
  - RASH GENERALISED [None]
